FAERS Safety Report 25306432 (Version 2)
Quarter: 2025Q2

REPORT INFORMATION
  Report Type: Report from Study
  Country: US (occurrence: US)
  Receive Date: 20250513
  Receipt Date: 20250618
  Transmission Date: 20250717
  Serious: Yes (Hospitalization, Other)
  Sender: ABBVIE
  Company Number: US-ABBVIE-5953625

PATIENT
  Age: 63 Year
  Sex: Female

DRUGS (6)
  1. RINVOQ [Suspect]
     Active Substance: UPADACITINIB
     Indication: Colitis microscopic
     Dosage: STRENGTH: 15 MG, LAST ADMIN DATE 2024
     Route: 048
     Dates: start: 20241004
  2. RINVOQ [Suspect]
     Active Substance: UPADACITINIB
     Indication: Colitis microscopic
     Dosage: STRENGTH: 15 MG, MISSED DOSE
     Route: 048
     Dates: end: 202503
  3. RINVOQ [Suspect]
     Active Substance: UPADACITINIB
     Indication: Colitis microscopic
     Dosage: STRENGTH: 15 MG, LAST ADMIN DATE 2024
     Route: 048
     Dates: start: 202409
  4. RINVOQ [Suspect]
     Active Substance: UPADACITINIB
     Indication: Colitis microscopic
     Dosage: STRENGTH: 15 MG, FIRST ADMIN DATE WAS 2024
     Route: 048
     Dates: end: 202411
  5. RINVOQ [Suspect]
     Active Substance: UPADACITINIB
     Indication: Colitis microscopic
     Dosage: STRENGTH: 15 MG, MISSED DOSE
     Route: 048
  6. RINVOQ [Suspect]
     Active Substance: UPADACITINIB
     Indication: Colitis microscopic
     Route: 048

REACTIONS (5)
  - Appendicitis [Unknown]
  - Product use in unapproved indication [Unknown]
  - Off label use [Unknown]
  - Musculoskeletal stiffness [Unknown]
  - Stress [Unknown]

NARRATIVE: CASE EVENT DATE: 20240101
